FAERS Safety Report 5822890-8 (Version None)
Quarter: 2008Q3

REPORT INFORMATION
  Report Type: 
  Country: None (occurrence: None)
  Receive Date: 20080724
  Receipt Date: 20080724
  Transmission Date: 20090109
  Serious: Yes (Other)
  Sender: FDA-Public Use
  Company Number: None

PATIENT
  Sex: Male

DRUGS (4)
  1. TOPAMAX [Suspect]
     Indication: ALCOHOLISM
     Dosage: 25MG BID PO
     Route: 048
     Dates: start: 20080618, end: 20080628
  2. CAMPRAL [Concomitant]
  3. CELEXA [Concomitant]
  4. TRICOR [Concomitant]

REACTIONS (1)
  - ANGLE CLOSURE GLAUCOMA [None]
